FAERS Safety Report 20455000 (Version 1)
Quarter: 2022Q1

REPORT INFORMATION
  Report Type: Spontaneous
  Country: CA (occurrence: CA)
  Receive Date: 20220210
  Receipt Date: 20220210
  Transmission Date: 20220424
  Serious: Yes (Life-Threatening, Hospitalization)
  Sender: FDA-Public Use
  Company Number: CA-TEVA-2022-CA-2004431

PATIENT
  Age: 63 Year
  Sex: Male

DRUGS (16)
  1. CARBOPLATIN [Suspect]
     Active Substance: CARBOPLATIN
     Route: 065
  2. KEYTRUDA [Suspect]
     Active Substance: PEMBROLIZUMAB
     Route: 065
  3. PACLITAXEL [Suspect]
     Active Substance: PACLITAXEL
     Route: 065
  4. ARANESP [Concomitant]
     Active Substance: DARBEPOETIN ALFA
  5. CALCIUM [Concomitant]
     Active Substance: CALCIUM
  6. CELEXA [Concomitant]
     Active Substance: CITALOPRAM HYDROBROMIDE
  7. HYDROMORPHONE [Concomitant]
     Active Substance: HYDROMORPHONE
  8. OLODATEROL HYDROCHLORIDE\TIOTROPIUM BROMIDE MONOHYDRATE [Concomitant]
     Active Substance: OLODATEROL HYDROCHLORIDE\TIOTROPIUM BROMIDE MONOHYDRATE
     Dosage: RESPIMAT FOR ORAL INHALATION WITH INSPIOLTO RESPIMAT INHALER
  9. PANTOPRAZOLE [Concomitant]
     Active Substance: PANTOPRAZOLE
  10. PEG 3350 [Concomitant]
     Active Substance: POLYETHYLENE GLYCOL 3350
  11. RISPERDAL [Concomitant]
     Active Substance: RISPERIDONE
  12. ALBUTEROL [Concomitant]
     Active Substance: ALBUTEROL
  13. SENNA [Concomitant]
     Active Substance: SENNA LEAF\SENNOSIDES\SENNOSIDES A AND B
  14. SEROQUEL [Concomitant]
     Active Substance: QUETIAPINE FUMARATE
  15. VITAMIN D [Concomitant]
     Active Substance: VITAMIN D NOS
  16. renal vitamin [Concomitant]

REACTIONS (2)
  - Pyrexia [Recovering/Resolving]
  - Sepsis [Recovering/Resolving]
